FAERS Safety Report 10874638 (Version 3)
Quarter: 2015Q3

REPORT INFORMATION
  Report Type: Spontaneous
  Country: US (occurrence: US)
  Receive Date: 20150227
  Receipt Date: 20150702
  Transmission Date: 20151125
  Serious: Yes (Life-Threatening, Hospitalization)
  Sender: FDA-Public Use
  Company Number: US-BAYER-2015-027914

PATIENT
  Age: 28 Year
  Sex: Female
  Weight: 61.22 kg

DRUGS (2)
  1. MIRENA [Suspect]
     Active Substance: LEVONORGESTREL
     Indication: CONTRACEPTION
     Dosage: 20 MCG/24HR, CONT
     Route: 015
     Dates: start: 20061205, end: 20130329
  2. MIRENA [Suspect]
     Active Substance: LEVONORGESTREL
     Indication: CONTRACEPTION
     Dosage: 20 MCG/24HR, CONT
     Route: 015
     Dates: start: 20120224, end: 20130329

REACTIONS (12)
  - General physical health deterioration [None]
  - Abdominal pain [None]
  - Device use error [None]
  - Emotional distress [None]
  - Device issue [None]
  - Depression [None]
  - Injury [None]
  - Anhedonia [None]
  - Uterine perforation [None]
  - Off label use of device [None]
  - Anxiety [None]
  - Infection [None]

NARRATIVE: CASE EVENT DATE: 2010
